FAERS Safety Report 19442019 (Version 1)
Quarter: 2021Q2

REPORT INFORMATION
  Report Type: Spontaneous
  Country: US (occurrence: US)
  Receive Date: 20210618
  Receipt Date: 20210618
  Transmission Date: 20210717
  Serious: Yes (Hospitalization)
  Sender: FDA-Public Use
  Company Number: None

PATIENT
  Age: 70 Year
  Sex: Male
  Weight: 58 kg

DRUGS (2)
  1. TAXOL [Suspect]
     Active Substance: PACLITAXEL
     Dates: end: 20210601
  2. CARBOPLATIN. [Suspect]
     Active Substance: CARBOPLATIN
     Dates: end: 20210601

REACTIONS (8)
  - Oesophagitis [None]
  - Chronic obstructive pulmonary disease [None]
  - Dizziness [None]
  - Cough [None]
  - Weight decreased [None]
  - Pulmonary cavitation [None]
  - Dyspnoea [None]
  - Malaise [None]

NARRATIVE: CASE EVENT DATE: 20210607
